FAERS Safety Report 24675937 (Version 1)
Quarter: 2024Q4

REPORT INFORMATION
  Report Type: Spontaneous
  Country: US (occurrence: US)
  Receive Date: 20241128
  Receipt Date: 20241128
  Transmission Date: 20250115
  Serious: No
  Sender: ELI LILLY AND COMPANY
  Company Number: US-ELI_LILLY_AND_COMPANY-US202411009316

PATIENT
  Age: 66 Year
  Sex: Female

DRUGS (34)
  1. MOUNJARO [Suspect]
     Active Substance: TIRZEPATIDE
     Indication: Glucose tolerance impaired
     Dosage: 7.5 MG, UNKNOWN
     Route: 058
     Dates: start: 202406
  2. MOUNJARO [Suspect]
     Active Substance: TIRZEPATIDE
     Indication: Glucose tolerance impaired
     Dosage: 7.5 MG, UNKNOWN
     Route: 058
     Dates: start: 202406
  3. MOUNJARO [Suspect]
     Active Substance: TIRZEPATIDE
     Indication: Glucose tolerance impaired
     Dosage: 7.5 MG, UNKNOWN
     Route: 058
     Dates: start: 202406
  4. MOUNJARO [Suspect]
     Active Substance: TIRZEPATIDE
     Indication: Glucose tolerance impaired
     Dosage: 7.5 MG, UNKNOWN
     Route: 058
     Dates: start: 202406
  5. MOUNJARO [Suspect]
     Active Substance: TIRZEPATIDE
     Indication: Weight control
  6. MOUNJARO [Suspect]
     Active Substance: TIRZEPATIDE
     Indication: Weight control
  7. MOUNJARO [Suspect]
     Active Substance: TIRZEPATIDE
     Indication: Weight control
  8. MOUNJARO [Suspect]
     Active Substance: TIRZEPATIDE
     Indication: Weight control
  9. MOUNJARO [Suspect]
     Active Substance: TIRZEPATIDE
     Indication: Glucose tolerance impaired
     Dosage: 10 MG, UNKNOWN
     Route: 058
  10. MOUNJARO [Suspect]
     Active Substance: TIRZEPATIDE
     Indication: Glucose tolerance impaired
     Dosage: 10 MG, UNKNOWN
     Route: 058
  11. MOUNJARO [Suspect]
     Active Substance: TIRZEPATIDE
     Indication: Glucose tolerance impaired
     Dosage: 10 MG, UNKNOWN
     Route: 058
  12. MOUNJARO [Suspect]
     Active Substance: TIRZEPATIDE
     Indication: Glucose tolerance impaired
     Dosage: 10 MG, UNKNOWN
     Route: 058
  13. MOUNJARO [Suspect]
     Active Substance: TIRZEPATIDE
     Indication: Weight control
  14. MOUNJARO [Suspect]
     Active Substance: TIRZEPATIDE
     Indication: Weight control
  15. MOUNJARO [Suspect]
     Active Substance: TIRZEPATIDE
     Indication: Weight control
  16. MOUNJARO [Suspect]
     Active Substance: TIRZEPATIDE
     Indication: Weight control
  17. MOUNJARO [Suspect]
     Active Substance: TIRZEPATIDE
     Indication: Glucose tolerance impaired
     Dosage: 12.5 MG, UNKNOWN
     Route: 058
  18. MOUNJARO [Suspect]
     Active Substance: TIRZEPATIDE
     Indication: Glucose tolerance impaired
     Dosage: 12.5 MG, UNKNOWN
     Route: 058
  19. MOUNJARO [Suspect]
     Active Substance: TIRZEPATIDE
     Indication: Glucose tolerance impaired
     Dosage: 12.5 MG, UNKNOWN
     Route: 058
  20. MOUNJARO [Suspect]
     Active Substance: TIRZEPATIDE
     Indication: Glucose tolerance impaired
     Dosage: 12.5 MG, UNKNOWN
     Route: 058
  21. MOUNJARO [Suspect]
     Active Substance: TIRZEPATIDE
     Indication: Weight control
  22. MOUNJARO [Suspect]
     Active Substance: TIRZEPATIDE
     Indication: Weight control
  23. MOUNJARO [Suspect]
     Active Substance: TIRZEPATIDE
     Indication: Weight control
  24. MOUNJARO [Suspect]
     Active Substance: TIRZEPATIDE
     Indication: Weight control
  25. MOUNJARO [Suspect]
     Active Substance: TIRZEPATIDE
     Indication: Glucose tolerance impaired
     Dosage: 15 MG, UNKNOWN
     Route: 058
     Dates: start: 202409
  26. MOUNJARO [Suspect]
     Active Substance: TIRZEPATIDE
     Indication: Glucose tolerance impaired
     Dosage: 15 MG, UNKNOWN
     Route: 058
     Dates: start: 202409
  27. MOUNJARO [Suspect]
     Active Substance: TIRZEPATIDE
     Indication: Glucose tolerance impaired
     Dosage: 15 MG, UNKNOWN
     Route: 058
     Dates: start: 202409
  28. MOUNJARO [Suspect]
     Active Substance: TIRZEPATIDE
     Indication: Glucose tolerance impaired
     Dosage: 15 MG, UNKNOWN
     Route: 058
     Dates: start: 202409
  29. MOUNJARO [Suspect]
     Active Substance: TIRZEPATIDE
     Indication: Weight control
  30. MOUNJARO [Suspect]
     Active Substance: TIRZEPATIDE
     Indication: Weight control
  31. MOUNJARO [Suspect]
     Active Substance: TIRZEPATIDE
     Indication: Weight control
  32. MOUNJARO [Suspect]
     Active Substance: TIRZEPATIDE
     Indication: Weight control
  33. METFORMIN [Concomitant]
     Active Substance: METFORMIN HYDROCHLORIDE
     Indication: Product used for unknown indication
  34. METRONIDAZOLE [Concomitant]
     Active Substance: METRONIDAZOLE
     Indication: Product used for unknown indication
     Dosage: UNK, UNKNOWN
     Route: 065

REACTIONS (12)
  - Off label use [Unknown]
  - Metabolic disorder [Unknown]
  - Blood oestrogen decreased [Unknown]
  - Blood urea increased [Unknown]
  - Blood creatinine increased [Unknown]
  - Urinary tract infection [Unknown]
  - Insomnia [Unknown]
  - Hot flush [Recovered/Resolved]
  - Gastrooesophageal reflux disease [Unknown]
  - Eructation [Unknown]
  - Injection site urticaria [Unknown]
  - Injection site bruising [Unknown]

NARRATIVE: CASE EVENT DATE: 20240601
